FAERS Safety Report 5126060-0 (Version None)
Quarter: 2006Q4

REPORT INFORMATION
  Report Type: 
  Country: None (occurrence: None)
  Receive Date: 20061012
  Receipt Date: 20060914
  Transmission Date: 20070319
  Serious: Yes (Hospitalization)
  Sender: FDA-Public Use
  Company Number: SE-ROCHE-463142

PATIENT
  Age: 65 Year
  Sex: Female

DRUGS (4)
  1. PEGASYS [Suspect]
     Indication: HEPATITIS C
     Dosage: DOSAGE REGIMEN ALSO REPORTED AS 180 RGW.
     Route: 058
     Dates: start: 20050725, end: 20060102
  2. COPEGUS [Suspect]
     Indication: HEPATITIS C
     Dosage: DOSAGE REGIMEN ALSO REPORTED AS 800 MGD.
     Route: 048
     Dates: start: 20050725, end: 20060109
  3. CIPRAMIL [Concomitant]
     Dosage: FILM-COATED TABLET 20 MG. MANUFACTURER: H. LUNDBECK A/S.
  4. ZOPICLON [Concomitant]
     Dosage: FILM-COATED TABLET. MANUFACTURER: MERCK NM.

REACTIONS (2)
  - GENITAL NEOPLASM MALIGNANT FEMALE [None]
  - VULVAL CANCER [None]
